FAERS Safety Report 9324318 (Version 2)
Quarter: 2013Q4

REPORT INFORMATION
  Report Type: Spontaneous
  Country: FR (occurrence: FR)
  Receive Date: 20130603
  Receipt Date: 20131015
  Transmission Date: 20140711
  Serious: Yes (Disabling)
  Sender: FDA-Public Use
  Company Number: FR-PFIZER INC-2013162684

PATIENT
  Age: 70 Year
  Sex: Male

DRUGS (16)
  1. TAHOR [Suspect]
     Dosage: 10 MG, 1X/DAY
     Route: 048
     Dates: end: 2013
  2. SOLUPRED [Suspect]
     Dosage: 20 MG, 1X/DAY
     Route: 048
  3. LASILIX [Concomitant]
     Dosage: UNK
  4. INEXIUM [Concomitant]
     Dosage: UNK
  5. KARDEGIC [Concomitant]
     Dosage: UNK
  6. TEMERIT [Concomitant]
     Dosage: UNK
  7. RENAGEL [Concomitant]
     Dosage: UNK
  8. ZITHROMAX [Concomitant]
     Dosage: UNK
  9. MIMPARA [Concomitant]
     Dosage: UNK
  10. EUPRESSYL [Concomitant]
     Dosage: UNK
  11. PROGRAF [Concomitant]
     Dosage: UNK
  12. CELLCEPT [Concomitant]
     Dosage: UNK
  13. ULCAR [Concomitant]
     Dosage: UNK
  14. ROVALCYTE [Concomitant]
     Dosage: UNK
  15. TRIFLUCAN [Concomitant]
     Dosage: UNK
  16. PHOSPHONEUROS [Concomitant]
     Dosage: UNK

REACTIONS (1)
  - Tendonitis [Recovered/Resolved]
